FAERS Safety Report 14203419 (Version 2)
Quarter: 2017Q4

REPORT INFORMATION
  Report Type: Report from Study
  Country: None (occurrence: CA)
  Receive Date: 20171120
  Receipt Date: 20171226
  Transmission Date: 20180321
  Serious: Yes (Other)
  Sender: FDA-Public Use
  Company Number: CA-ABBVIE-17K-028-2165344-00

PATIENT
  Age: 51 Year
  Sex: Female
  Weight: 68 kg

DRUGS (1)
  1. HUMIRA [Suspect]
     Active Substance: ADALIMUMAB
     Indication: CROHN^S DISEASE
     Route: 058
     Dates: start: 20120426

REACTIONS (6)
  - Peripheral arterial occlusive disease [Unknown]
  - Crohn^s disease [Not Recovered/Not Resolved]
  - Colon adenoma [Not Recovered/Not Resolved]
  - Anal fistula [Unknown]
  - Small intestinal stenosis [Unknown]
  - Large intestinal stenosis [Recovered/Resolved]

NARRATIVE: CASE EVENT DATE: 2017
